FAERS Safety Report 11904824 (Version 1)
Quarter: 2016Q1

REPORT INFORMATION
  Report Type: Spontaneous
  Country: US (occurrence: US)
  Receive Date: 20160108
  Receipt Date: 20160108
  Transmission Date: 20160526
  Serious: No
  Sender: FDA-Public Use
  Company Number: US-ROCHE-1622583

PATIENT
  Sex: Male

DRUGS (2)
  1. ZYDELIG [Concomitant]
     Active Substance: IDELALISIB
  2. RITUXAN [Suspect]
     Active Substance: RITUXIMAB
     Indication: B-CELL LYMPHOMA
     Dosage: 375 MG PER METER SQUARED, EQUALS 800 MG
     Route: 042

REACTIONS (1)
  - Disease recurrence [Not Recovered/Not Resolved]
